FAERS Safety Report 8401578 (Version 5)
Quarter: 2012Q4

REPORT INFORMATION
  Report Type: 
  Country: US (occurrence: US)
  Receive Date: 20120210
  Receipt Date: 20121230
  Transmission Date: 20130627
  Serious: Yes (Other)
  Sender: FDA-Public Use
  Company Number: US-AMGEN-USASP2011070027

PATIENT
  Age: 0 Year
  Sex: Male
  Weight: 2.61 kg

DRUGS (9)
  1. ENBREL [Suspect]
     Dosage: 50 mg, qwk
     Route: 064
     Dates: start: 20040601, end: 20110223
  2. MUCINEX [Concomitant]
     Dosage: UNK UNK, prn
     Route: 064
  3. PRENATAL VITAMINS                  /01549301/ [Concomitant]
     Dosage: UNK
     Route: 064
  4. RENATA [Concomitant]
     Dosage: UNK UNK, qd
     Route: 064
     Dates: start: 20110223
  5. NASONEX [Concomitant]
     Indication: COUGH
     Dosage: UNK UNK, qd
     Route: 064
     Dates: start: 20110420
  6. NASONEX [Concomitant]
     Dosage: UNK UNK, qd
     Route: 064
     Dates: start: 20110321
  7. BENADRYL                           /00000402/ [Concomitant]
     Indication: COUGH
     Dosage: UNK
     Route: 064
     Dates: start: 20110420
  8. ZANTAC [Concomitant]
     Indication: COUGH
     Dosage: UNK UNK, one time dose
     Route: 064
     Dates: start: 20110420
  9. TYLENOL W/CODEINE [Concomitant]
     Dosage: UNK UNK, prn
     Route: 064
     Dates: start: 20110615

REACTIONS (2)
  - Premature baby [Recovered/Resolved]
  - Inguinal hernia [Recovered/Resolved]
